FAERS Safety Report 9617380 (Version 2)
Quarter: 2014Q1

REPORT INFORMATION
  Report Type: Spontaneous
  Country: BR (occurrence: BR)
  Receive Date: 20131011
  Receipt Date: 20140122
  Transmission Date: 20141002
  Serious: Yes (Other)
  Sender: FDA-Public Use
  Company Number: BR-ASTRAZENECA-2013SE74584

PATIENT
  Sex: Male

DRUGS (6)
  1. BRILINTA [Suspect]
     Route: 048
     Dates: start: 201306, end: 201309
  2. CEBRALAT [Concomitant]
     Indication: NERVOUS SYSTEM DISORDER
  3. GABAPENTIN [Concomitant]
     Indication: PAIN
  4. TRAMAL [Concomitant]
     Indication: PAIN
  5. RIVOTRIL [Concomitant]
     Indication: SLEEP DISORDER
  6. UNSPECIFIED COMPOUDED MEDICATION [Concomitant]
     Indication: PROSTATOMEGALY
     Dates: start: 2011

REACTIONS (2)
  - Prostatomegaly [Not Recovered/Not Resolved]
  - Blood urine present [Unknown]
